FAERS Safety Report 10158486 (Version 1)
Quarter: 2014Q2

REPORT INFORMATION
  Report Type: Spontaneous
  Country: US (occurrence: US)
  Receive Date: 20140507
  Receipt Date: 20140507
  Transmission Date: 20141212
  Serious: No
  Sender: FDA-Public Use
  Company Number: US-AMGEN-USASP2014013027

PATIENT
  Age: 40 Year
  Sex: Female

DRUGS (2)
  1. ARANESP [Suspect]
     Indication: ANAEMIA
     Dosage: 25 MUG, UNK
     Route: 065
     Dates: start: 20110217
  2. ARANESP [Suspect]

REACTIONS (1)
  - Therapeutic response decreased [Unknown]
